FAERS Safety Report 16149242 (Version 2)
Quarter: 2019Q2

REPORT INFORMATION
  Report Type: Spontaneous
  Country: JP (occurrence: JP)
  Receive Date: 20190402
  Receipt Date: 20190422
  Transmission Date: 20190711
  Serious: Yes (Death, Other)
  Sender: FDA-Public Use
  Company Number: JP-SEATTLE GENETICS-2018SGN01207

PATIENT
  Age: 53 Year
  Sex: Female
  Weight: 65.5 kg

DRUGS (5)
  1. ADCETRIS [Suspect]
     Active Substance: BRENTUXIMAB VEDOTIN
     Indication: ANAPLASTIC LARGE-CELL LYMPHOMA
     Dosage: 100 MILLIGRAM, Q3WEEKS
     Route: 041
     Dates: start: 20180517, end: 20180517
  2. PARACETAMOL [Concomitant]
     Active Substance: ACETAMINOPHEN
     Dosage: 600 MILLIGRAM
     Route: 065
     Dates: start: 20180517
  3. RASBURICASE [Concomitant]
     Active Substance: RASBURICASE
     Indication: PROPHYLAXIS
     Dosage: 12 MILLIGRAM, QD
     Route: 041
     Dates: start: 20180512, end: 20180517
  4. FUROSEMIDE. [Concomitant]
     Active Substance: FUROSEMIDE
     Dosage: 20 MILLIGRAM
     Route: 042
     Dates: start: 20180517
  5. OMEPRAZOLE SODIUM                        /00661202/ [Concomitant]
     Indication: GASTROINTESTINAL DISORDER
     Dosage: 20 MILLIGRAM, BID
     Route: 041
     Dates: start: 20180508, end: 20180517

REACTIONS (2)
  - Anaplastic large-cell lymphoma [Fatal]
  - Gastrointestinal haemorrhage [Fatal]

NARRATIVE: CASE EVENT DATE: 20180517
